FAERS Safety Report 4765518-0 (Version None)
Quarter: 2005Q3

REPORT INFORMATION
  Report Type: 
  Country: None (occurrence: None)
  Receive Date: 20050912
  Receipt Date: 20050831
  Transmission Date: 20060218
  Serious: Yes (Death, Hospitalization)
  Sender: FDA-Public Use
  Company Number: FR-JNJFOC-20050900157

PATIENT
  Age: 82 Year
  Sex: Male
  Weight: 61 kg

DRUGS (14)
  1. REOPRO [Suspect]
     Dosage: 10 MCG/MIN OVER 12 HOURS.
     Route: 042
  2. REOPRO [Suspect]
     Indication: MYOCARDIAL INFARCTION
     Route: 042
  3. ASPEGIC 325 [Concomitant]
  4. LOVENOX [Concomitant]
  5. PLAVIX [Concomitant]
  6. HEXABRIX [Concomitant]
  7. HEXABRIX [Concomitant]
  8. ATROPINE [Concomitant]
  9. HYDROCORTISONE [Concomitant]
  10. CORVASAL [Concomitant]
  11. ISOPTIN [Concomitant]
  12. SECTRAL [Concomitant]
  13. RISORDAN [Concomitant]
  14. MUCOMYST [Concomitant]

REACTIONS (2)
  - CARDIAC ARREST [None]
  - THROMBOCYTOPENIA [None]
